FAERS Safety Report 15322381 (Version 3)
Quarter: 2018Q3

REPORT INFORMATION
  Report Type: Spontaneous
  Country: HU (occurrence: HU)
  Receive Date: 20180827
  Receipt Date: 20180925
  Transmission Date: 20181010
  Serious: Yes (Death, Hospitalization, Other)
  Sender: FDA-Public Use
  Company Number: PHHY2018HU074593

PATIENT
  Age: 13 Year
  Sex: Female

DRUGS (6)
  1. PARAFFIN OIL [Concomitant]
     Indication: PRODUCT USED FOR UNKNOWN INDICATION
     Dosage: UNK
     Route: 065
  2. PIPERACILLIN AND TAZOBACTAM [Suspect]
     Active Substance: PIPERACILLIN SODIUM\TAZOBACTAM SODIUM
     Indication: PRODUCT USED FOR UNKNOWN INDICATION
     Dosage: 4 G, TID
     Route: 065
  3. CEFOTAXIME [Concomitant]
     Active Substance: CEFOTAXIME SODIUM
     Indication: PRODUCT USED FOR UNKNOWN INDICATION
     Dosage: 25 MG/KG, QID
     Route: 065
  4. GENTAMICIN. [Suspect]
     Active Substance: GENTAMICIN
     Indication: PRODUCT USED FOR UNKNOWN INDICATION
     Dosage: 6 MG/KG, QD
     Route: 065
  5. METRONIDAZOLE. [Suspect]
     Active Substance: METRONIDAZOLE
     Indication: PRODUCT USED FOR UNKNOWN INDICATION
     Dosage: 10 MG/KG, TID
     Route: 065
  6. PIPERACILLIN AND TAZOBACTAM [Suspect]
     Active Substance: PIPERACILLIN SODIUM\TAZOBACTAM SODIUM
     Dosage: 0.5 G, QD
     Route: 065

REACTIONS (24)
  - Hypoxia [Recovered/Resolved]
  - Hernia [Unknown]
  - Tachycardia [Recovered/Resolved]
  - Asthenia [Unknown]
  - Metabolic acidosis [Recovered/Resolved]
  - Circulatory collapse [Fatal]
  - Vomiting [Unknown]
  - Thrombosis [Unknown]
  - General physical health deterioration [Unknown]
  - Ketoacidosis [Unknown]
  - Depression [Unknown]
  - Agitation [Recovered/Resolved]
  - Anaemia [Recovered/Resolved]
  - Large intestine perforation [Unknown]
  - Constipation [Unknown]
  - Abscess [Unknown]
  - Stoma site hypersensitivity [Unknown]
  - Peritonitis [Unknown]
  - Abdominal pain [Recovered/Resolved]
  - Intra-abdominal fluid collection [Unknown]
  - Abdominal pain upper [Recovered/Resolved]
  - Acute respiratory distress syndrome [Unknown]
  - Postoperative wound complication [Unknown]
  - Haematocrit decreased [Recovered/Resolved]
